FAERS Safety Report 4666224-3 (Version None)
Quarter: 2005Q2

REPORT INFORMATION
  Report Type: 
  Country: None (occurrence: None)
  Receive Date: 20050518
  Receipt Date: 20050505
  Transmission Date: 20051028
  Serious: Yes (Life-Threatening)
  Sender: FDA-Public Use
  Company Number: 2005071513

PATIENT
  Sex: Female

DRUGS (3)
  1. GABAPENTIN [Suspect]
     Indication: ARTHROPATHY
     Dosage: (300 MG), ORAL
     Route: 048
  2. GABAPENTIN [Suspect]
     Indication: FACIAL PAIN
     Dosage: (300 MG), ORAL
     Route: 048
  3. CODEINE PHOSPHATE AND ACETAMINOPHEN [Concomitant]

REACTIONS (4)
  - ANAPHYLACTIC REACTION [None]
  - BLOOD PRESSURE DIASTOLIC DECREASED [None]
  - PHARYNGEAL OEDEMA [None]
  - SWOLLEN TONGUE [None]
